FAERS Safety Report 16641682 (Version 1)
Quarter: 2019Q3

REPORT INFORMATION
  Report Type: Spontaneous
  Country: US (occurrence: US)
  Receive Date: 20190726
  Receipt Date: 20190726
  Transmission Date: 20191004
  Serious: Yes (Life-Threatening, Hospitalization)
  Sender: FDA-Public Use
  Company Number: None

PATIENT
  Age: 50 Year
  Sex: Female
  Weight: 101.2 kg

DRUGS (5)
  1. INSULIN LISPRO (HUMALOG KWIKPEN) 100 UNIT/ML , 70 U SQ DAILY PER SS [Concomitant]
     Dates: start: 20130717
  2. LIRAGLUTIDE (VICTOZA), 1.8 MG SQ DAILY [Concomitant]
     Dates: start: 20131206
  3. INSULIN GLARGINE U-300 (TOUJEO), 50 U SQ HS [Concomitant]
     Dates: start: 20170420
  4. METFORMIN, 1000 MG PO BID [Concomitant]
     Dates: start: 20130719
  5. INVOKANA [Suspect]
     Active Substance: CANAGLIFLOZIN
     Indication: TYPE 2 DIABETES MELLITUS
     Route: 048
     Dates: start: 20150616, end: 20190722

REACTIONS (1)
  - Euglycaemic diabetic ketoacidosis [None]

NARRATIVE: CASE EVENT DATE: 20190723
